FAERS Safety Report 15378656 (Version 1)
Quarter: 2018Q3

REPORT INFORMATION
  Report Type: Spontaneous
  Country: US (occurrence: US)
  Receive Date: 20180906
  Receipt Date: 20180906
  Transmission Date: 20181010
  Serious: No
  Sender: FDA-Public Use
  Company Number: None

PATIENT
  Sex: Female

DRUGS (1)
  1. HALODERM, SKIN TAG AND MOLE REMOVER (HOMEOPATHIC) [Suspect]
     Active Substance: HOMEOPATHICS

REACTIONS (4)
  - Application site scar [None]
  - Application site discolouration [None]
  - Application site burn [None]
  - Impaired work ability [None]

NARRATIVE: CASE EVENT DATE: 20180808
